FAERS Safety Report 9352808 (Version 2)
Quarter: 2013Q3

REPORT INFORMATION
  Report Type: Spontaneous
  Country: US (occurrence: US)
  Receive Date: 20130618
  Receipt Date: 20130913
  Transmission Date: 20140515
  Serious: Yes (Hospitalization)
  Sender: FDA-Public Use
  Company Number: US-BIOGENIDEC-2013BI053440

PATIENT
  Age: 45 Year
  Sex: Female

DRUGS (2)
  1. AVONEX [Suspect]
     Indication: MULTIPLE SCLEROSIS
     Route: 030
     Dates: start: 20051003, end: 20130626
  2. COPAXONE [Concomitant]

REACTIONS (5)
  - Multiple sclerosis relapse [Recovered/Resolved]
  - Diabetes mellitus [Not Recovered/Not Resolved]
  - Central nervous system lesion [Not Recovered/Not Resolved]
  - Dysstasia [Recovered/Resolved]
  - Skin mass [Not Recovered/Not Resolved]
